FAERS Safety Report 4805103-5 (Version None)
Quarter: 2005Q4

REPORT INFORMATION
  Report Type: 
  Country: None (occurrence: None)
  Receive Date: 20051017
  Receipt Date: 20050929
  Transmission Date: 20060501
  Serious: Yes (Other)
  Sender: FDA-Public Use
  Company Number: 430013M05DEU

PATIENT
  Age: 24 Year
  Sex: Male

DRUGS (1)
  1. MITOXANTRONE [Suspect]
     Indication: MULTIPLE SCLEROSIS
     Dosage: 12 MG/M2

REACTIONS (3)
  - CARDIOMYOPATHY [None]
  - EJECTION FRACTION DECREASED [None]
  - WHITE BLOOD CELL COUNT DECREASED [None]
